FAERS Safety Report 7502393-5 (Version None)
Quarter: 2011Q2

REPORT INFORMATION
  Report Type: 
  Country: None (occurrence: None)
  Receive Date: 20110525
  Receipt Date: 20110512
  Transmission Date: 20111010
  Serious: Yes (Other)
  Sender: FDA-Public Use
  Company Number: US-BAYER-2010-004344

PATIENT
  Age: 40 Year
  Sex: Female
  Weight: 117.91 kg

DRUGS (7)
  1. ANTIBIOTICS [Concomitant]
  2. VERAPAMIL [Concomitant]
     Dosage: UNK
     Dates: start: 20091004
  3. YAZ [Suspect]
     Indication: PREMENSTRUAL SYNDROME
     Dosage: UNK
     Dates: start: 20070830
  4. ACE INHIBITOR NOS [Concomitant]
  5. TORDOL [Concomitant]
  6. NSAID'S [Concomitant]
  7. ACETAMINOPHEN [Concomitant]

REACTIONS (2)
  - PAIN [None]
  - DEEP VEIN THROMBOSIS [None]
